FAERS Safety Report 9335778 (Version 2)
Quarter: 2013Q3

REPORT INFORMATION
  Report Type: Spontaneous
  Country: US (occurrence: US)
  Receive Date: 20130606
  Receipt Date: 20130730
  Transmission Date: 20140515
  Serious: Yes (Other)
  Sender: FDA-Public Use
  Company Number: US-ASTRAZENECA-2013SE36147

PATIENT
  Age: 70 Year
  Sex: Female
  Weight: 58.1 kg

DRUGS (15)
  1. TOPROL [Suspect]
     Indication: CORONARY ARTERY DISEASE
     Dosage: DAILY
     Route: 048
  2. TOPROL [Suspect]
     Indication: LIPIDS ABNORMAL
     Dosage: DAILY
     Route: 048
  3. BRILINTA [Suspect]
     Indication: ACUTE MYOCARDIAL INFARCTION
     Route: 048
     Dates: start: 201206, end: 201306
  4. BRILINTA [Suspect]
     Indication: CORONARY ARTERY DISEASE
     Route: 048
     Dates: start: 201206, end: 201306
  5. BRILINTA [Suspect]
     Indication: ACUTE CORONARY SYNDROME
     Route: 048
     Dates: start: 201206, end: 201306
  6. ASPIRIN [Concomitant]
     Indication: CORONARY ARTERY DISEASE
     Dosage: DAILY
     Route: 048
  7. ASPIRIN [Concomitant]
     Indication: LIPIDS ABNORMAL
     Dosage: DAILY
     Route: 048
  8. LIPITOR [Concomitant]
     Indication: CORONARY ARTERY DISEASE
     Dosage: DAILY
     Route: 048
  9. LIPITOR [Concomitant]
     Indication: LIPIDS ABNORMAL
     Dosage: DAILY
     Route: 048
  10. NIASPAN [Concomitant]
     Indication: CORONARY ARTERY DISEASE
     Dosage: DAILY
     Route: 048
  11. NIASPAN [Concomitant]
     Indication: LIPIDS ABNORMAL
     Dosage: DAILY
     Route: 048
  12. ALTACE [Concomitant]
     Indication: CORONARY ARTERY DISEASE
     Dosage: DAILY
     Route: 048
  13. ALTACE [Concomitant]
     Indication: LIPIDS ABNORMAL
     Dosage: DAILY
     Route: 048
  14. MULTIVITAMINS [Concomitant]
     Indication: CORONARY ARTERY DISEASE
     Dosage: DAILY
     Route: 048
  15. MULTIVITAMINS [Concomitant]
     Indication: LIPIDS ABNORMAL
     Dosage: DAILY
     Route: 048

REACTIONS (2)
  - Back pain [Not Recovered/Not Resolved]
  - Neck pain [Not Recovered/Not Resolved]
